FAERS Safety Report 7880453-7 (Version None)
Quarter: 2011Q4

REPORT INFORMATION
  Report Type: 
  Country: None (occurrence: None)
  Receive Date: 20111101
  Receipt Date: 20111026
  Transmission Date: 20120403
  Serious: Yes (Death, Other)
  Sender: FDA-Public Use
  Company Number: PHHY2011US95893

PATIENT
  Age: 16 Year
  Sex: Male

DRUGS (2)
  1. CYCLOSPORINE [Suspect]
     Indication: PROPHYLAXIS AGAINST GRAFT VERSUS HOST DISEASE
  2. RADIOTHERAPY [Concomitant]

REACTIONS (3)
  - CONCOMITANT DISEASE PROGRESSION [None]
  - ENTERITIS [None]
  - RHABDOMYOSARCOMA RECURRENT [None]
